FAERS Safety Report 7940398-0 (Version None)
Quarter: 2011Q4

REPORT INFORMATION
  Report Type: 
  Country: None (occurrence: None)
  Receive Date: 20111127
  Receipt Date: 20111117
  Transmission Date: 20120403
  Serious: Yes (Death, Hospitalization, Other)
  Sender: FDA-Public Use
  Company Number: US-ELI_LILLY_AND_COMPANY-US201102003668

PATIENT
  Sex: Female
  Weight: 45.805 kg

DRUGS (4)
  1. FORTEO [Suspect]
     Dosage: 20 UG, QD
     Route: 058
  2. FORTEO [Suspect]
     Dosage: 20 UG, QD
     Route: 058
  3. FORTEO [Suspect]
     Indication: OSTEOPOROSIS
     Dosage: 20 UG, DAILY (1/D)
     Route: 058
     Dates: start: 20100818
  4. FORTEO [Suspect]
     Dosage: 20 UG, QD
     Route: 058

REACTIONS (10)
  - JOINT INJURY [None]
  - INJECTION SITE PAIN [None]
  - FALL [None]
  - DRUG DOSE OMISSION [None]
  - INJECTION SITE HAEMATOMA [None]
  - JOINT SWELLING [None]
  - LOWER LIMB FRACTURE [None]
  - PELVIC FRACTURE [None]
  - DEATH [None]
  - HIP FRACTURE [None]
